FAERS Safety Report 15376898 (Version 1)
Quarter: 2018Q3

REPORT INFORMATION
  Report Type: Spontaneous
  Country: US (occurrence: US)
  Receive Date: 20180913
  Receipt Date: 20180913
  Transmission Date: 20181010
  Serious: Yes (Death)
  Sender: FDA-Public Use
  Company Number: US-ROCHE-2184113

PATIENT
  Age: 36 Year
  Sex: Female

DRUGS (1)
  1. RITUXAN [Suspect]
     Active Substance: RITUXIMAB
     Indication: INTRADUCTAL PROLIFERATIVE BREAST LESION
     Route: 042
     Dates: start: 20171211, end: 20180825

REACTIONS (3)
  - Death [Fatal]
  - Off label use [Fatal]
  - Intentional product use issue [Fatal]

NARRATIVE: CASE EVENT DATE: 20180825
